FAERS Safety Report 7145032-8 (Version None)
Quarter: 2010Q4

REPORT INFORMATION
  Report Type: 
  Country: None (occurrence: None)
  Receive Date: 20101208
  Receipt Date: 20101124
  Transmission Date: 20110411
  Serious: Yes (Other)
  Sender: FDA-Public Use
  Company Number: US-MYLANLABS-2010S1021869

PATIENT
  Age: 7 Decade
  Sex: Male

DRUGS (2)
  1. SIMVASTATIN [Suspect]
     Route: 065
     Dates: start: 20070101
  2. ASPIRIN [Concomitant]
     Route: 065

REACTIONS (2)
  - DERMATITIS BULLOUS [None]
  - LEUKOCYTOCLASTIC VASCULITIS [None]
